FAERS Safety Report 21110665 (Version 1)
Quarter: 2022Q3

REPORT INFORMATION
  Report Type: Spontaneous
  Country: US (occurrence: None)
  Receive Date: 20220721
  Receipt Date: 20220721
  Transmission Date: 20221027
  Serious: Yes (Other)
  Sender: FDA-Public Use
  Company Number: US-Merck Healthcare KGaA-9336998

PATIENT
  Age: 35 Year
  Sex: Female

DRUGS (2)
  1. GONAL-F [Suspect]
     Active Substance: FOLLITROPIN
     Indication: In vitro fertilisation
     Route: 058
     Dates: start: 2022, end: 202207
  2. MENOPUR [Concomitant]
     Active Substance: FOLLITROPIN\LUTEINIZING HORMONE
     Indication: Product used for unknown indication

REACTIONS (1)
  - Syncope [Recovered/Resolved]

NARRATIVE: CASE EVENT DATE: 20220701
